FAERS Safety Report 8903939 (Version 7)
Quarter: 2015Q1

REPORT INFORMATION
  Report Type: Spontaneous
  Country: US (occurrence: US)
  Receive Date: 20121113
  Receipt Date: 20150210
  Transmission Date: 20150721
  Serious: Yes (Disabling)
  Sender: FDA-Public Use
  Company Number: US-MERCK-1211USA004422

PATIENT
  Sex: Male

DRUGS (2)
  1. PROPECIA [Suspect]
     Active Substance: FINASTERIDE
     Indication: ANDROGENETIC ALOPECIA
     Dosage: 1 MG, QD
     Route: 048
     Dates: start: 20081230, end: 20091128
  2. PROPECIA [Suspect]
     Active Substance: FINASTERIDE
     Dosage: 1 MG, QD
     Route: 048

REACTIONS (17)
  - Testicular pain [Not Recovered/Not Resolved]
  - Palpitations [Recovered/Resolved]
  - Ligament sprain [Unknown]
  - Joint injury [Unknown]
  - Epididymitis [Recovered/Resolved]
  - Sexual dysfunction [Not Recovered/Not Resolved]
  - Haemorrhoids [Not Recovered/Not Resolved]
  - Emotional distress [Not Recovered/Not Resolved]
  - Premature ejaculation [Unknown]
  - Pain in extremity [Not Recovered/Not Resolved]
  - Chest discomfort [Recovered/Resolved]
  - Erectile dysfunction [Unknown]
  - Libido decreased [Unknown]
  - Stress [Unknown]
  - Drug ineffective [Unknown]
  - Anxiety [Not Recovered/Not Resolved]
  - Micturition urgency [Unknown]

NARRATIVE: CASE EVENT DATE: 2009
